FAERS Safety Report 7403044-0 (Version None)
Quarter: 2011Q1

REPORT INFORMATION
  Report Type: 
  Country: None (occurrence: None)
  Receive Date: 20110331
  Receipt Date: 20110321
  Transmission Date: 20110831
  Serious: Yes (Other)
  Sender: FDA-Public Use
  Company Number: FR-1185525

PATIENT
  Age: 15 Month
  Sex: Female

DRUGS (1)
  1. ATROPINE SULFATE 0.3 % OPHTHALMIC (CONT.) [Suspect]
     Dosage: (1 GTT QOD OD OPHTHALMIC)
     Route: 047

REACTIONS (1)
  - CYTOLYTIC HEPATITIS [None]
